FAERS Safety Report 20562582 (Version 1)
Quarter: 2022Q1

REPORT INFORMATION
  Report Type: Spontaneous
  Country: CN (occurrence: CN)
  Receive Date: 20220307
  Receipt Date: 20220307
  Transmission Date: 20220423
  Serious: Yes (Other)
  Sender: FDA-Public Use
  Company Number: CN-PFIZER INC-202200310235

PATIENT
  Age: 13 Month
  Sex: Female

DRUGS (7)
  1. METHYLPREDNISOLONE SODIUM SUCCINATE [Suspect]
     Active Substance: METHYLPREDNISOLONE SODIUM SUCCINATE
     Indication: Pneumonia
     Dosage: 20 MG
     Route: 041
     Dates: start: 20220128, end: 20220202
  2. CEFTRIAXONE [Suspect]
     Active Substance: CEFTRIAXONE
     Indication: Pneumonia
     Dosage: 0.1 G
     Route: 041
     Dates: start: 20220128, end: 20220204
  3. POTASSIUM SODIUM 14-DEOXY-11,12-DEHYDROANDROGRAPHOLIDE SUCCINATE [Suspect]
     Active Substance: POTASSIUM SODIUM 14-DEOXY-11,12-DEHYDROANDROGRAPHOLIDE SUCCINATE
     Indication: Pneumonia
     Dosage: 80 MG
     Route: 041
     Dates: start: 20220128, end: 20220129
  4. BUDESONIDE [Suspect]
     Active Substance: BUDESONIDE
     Indication: Pneumonia
     Dosage: 1 MG, Q8H
     Route: 055
     Dates: start: 20220128, end: 20220204
  5. ALBUTEROL SULFATE [Suspect]
     Active Substance: ALBUTEROL SULFATE
     Indication: Pneumonia
     Dosage: 2.5 MG
     Dates: start: 20220128, end: 20220204
  6. HERBALS [Suspect]
     Active Substance: HERBALS
     Indication: Pneumonia
     Dosage: 3 ML, 3X/DAY
     Route: 048
     Dates: start: 20220128, end: 20220204
  7. HERBALS [Suspect]
     Active Substance: HERBALS
     Indication: Pneumonia
     Dosage: 3 ML, 3X/DAY
     Route: 048

REACTIONS (1)
  - Mycoplasma test positive [Unknown]

NARRATIVE: CASE EVENT DATE: 20220129
